FAERS Safety Report 4861421-6 (Version None)
Quarter: 2005Q4

REPORT INFORMATION
  Report Type: 
  Country: None (occurrence: None)
  Receive Date: 20051129
  Receipt Date: 20050310
  Transmission Date: 20060501
  Serious: Yes (Disabling)
  Sender: FDA-Public Use
  Company Number: WAES 0503USA01588

PATIENT
  Age: 60 Year
  Sex: Male

DRUGS (6)
  1. FOSAMAX [Suspect]
     Indication: OSTEOARTHRITIS
     Dosage: 70 MG/WKY/PO
     Route: 048
     Dates: start: 20010101, end: 20030101
  2. PREVACID [Suspect]
  3. CALTRATE [Concomitant]
  4. UNIVASC [Concomitant]
  5. ZOCOR [Concomitant]
  6. INSULIN [Concomitant]

REACTIONS (1)
  - GASTROOESOPHAGEAL REFLUX DISEASE [None]
